FAERS Safety Report 8141286-X (Version None)
Quarter: 2012Q1

REPORT INFORMATION
  Report Type: 
  Country: None (occurrence: None)
  Receive Date: 20120216
  Receipt Date: 20120207
  Transmission Date: 20120608
  Serious: Yes (Other)
  Sender: FDA-Public Use
  Company Number: US-ROCHE-1012689

PATIENT

DRUGS (2)
  1. HERCEPTIN [Suspect]
     Indication: BREAST CANCER METASTATIC
     Dates: start: 20000224
  2. PACLITAXEL [Suspect]
     Indication: BREAST CANCER METASTATIC

REACTIONS (3)
  - ASCITES [None]
  - OVARIAN CANCER [None]
  - HAEMORRHAGIC ASCITES [None]
